FAERS Safety Report 15829535 (Version 1)
Quarter: 2019Q1

REPORT INFORMATION
  Report Type: Spontaneous
  Country: US (occurrence: US)
  Receive Date: 20190115
  Receipt Date: 20190115
  Transmission Date: 20190417
  Serious: No
  Sender: FDA-Public Use
  Company Number: US-PERRIGO-18US007593

PATIENT
  Age: 45 Year
  Sex: Female
  Weight: 45.35 kg

DRUGS (2)
  1. TRETINOIN. [Suspect]
     Active Substance: TRETINOIN
     Dosage: 1 APPLICATION, QOD
     Route: 061
     Dates: start: 20180703
  2. TRETINOIN. [Suspect]
     Active Substance: TRETINOIN
     Indication: SKIN DISCOLOURATION
     Dosage: 1 APPLICATION, QOD
     Route: 061
     Dates: start: 201803, end: 201803

REACTIONS (4)
  - Drug effect decreased [Unknown]
  - Therapeutic response unexpected [Recovered/Resolved]
  - Application site exfoliation [Recovered/Resolved]
  - Off label use [Unknown]

NARRATIVE: CASE EVENT DATE: 201803
